FAERS Safety Report 14435006 (Version 1)
Quarter: 2018Q1

REPORT INFORMATION
  Report Type: Other
  Country: TR (occurrence: TR)
  Receive Date: 20180125
  Receipt Date: 20180125
  Transmission Date: 20180509
  Serious: Yes (Other)
  Sender: FDA-Public Use
  Company Number: TR-DEXPHARM-20180034

PATIENT
  Age: 45 Year
  Sex: Female

DRUGS (1)
  1. LEVETIRACETAM. [Suspect]
     Active Substance: LEVETIRACETAM
     Indication: SEIZURE

REACTIONS (2)
  - Aplasia [Recovered/Resolved]
  - Hypogammaglobulinaemia [Recovered/Resolved]
